FAERS Safety Report 4832617-4 (Version None)
Quarter: 2005Q4

REPORT INFORMATION
  Report Type: 
  Country: None (occurrence: None)
  Receive Date: 20051121
  Receipt Date: 20051109
  Transmission Date: 20060501
  Serious: Yes (Death, Hospitalization)
  Sender: FDA-Public Use
  Company Number: JP-JNJFOC-20041008374

PATIENT
  Sex: Male
  Weight: 47 kg

DRUGS (17)
  1. REMICADE [Suspect]
     Dosage: TOTAL OF 7 INFUSIONS AT AE ONSET
     Route: 042
  2. REMICADE [Suspect]
     Route: 042
  3. REMICADE [Suspect]
     Route: 042
  4. REMICADE [Suspect]
     Route: 042
  5. REMICADE [Suspect]
     Route: 042
  6. REMICADE [Suspect]
     Route: 042
  7. REMICADE [Suspect]
     Indication: RHEUMATOID ARTHRITIS
     Route: 042
  8. RHEUMATREX [Suspect]
     Route: 048
  9. RHEUMATREX [Suspect]
     Indication: RHEUMATOID ARTHRITIS
     Route: 048
  10. LOXONIN [Concomitant]
     Indication: RHEUMATOID ARTHRITIS
     Route: 048
  11. CATLEP [Concomitant]
     Indication: RHEUMATOID ARTHRITIS
     Dosage: DOSAGE: 70-140 MG
     Route: 047
  12. ADRENAL HORMONE PREPARATIONS [Concomitant]
  13. ISONIAZID [Concomitant]
     Indication: ANTIBIOTIC PROPHYLAXIS
     Route: 048
  14. HARNAL [Concomitant]
     Route: 048
  15. MAGLAX [Concomitant]
     Indication: GASTRITIS
     Route: 048
  16. SALIGREN [Concomitant]
     Indication: SJOGREN'S SYNDROME
     Route: 048
  17. FOLIAMIN [Concomitant]
     Route: 048

REACTIONS (5)
  - INTERSTITIAL LUNG DISEASE [None]
  - PNEUMOCYSTIS JIROVECI INFECTION [None]
  - PNEUMONIA [None]
  - RESPIRATORY FAILURE [None]
  - STAPHYLOCOCCAL INFECTION [None]
